FAERS Safety Report 8615322-8 (Version None)
Quarter: 2012Q3

REPORT INFORMATION
  Report Type: 
  Country: None (occurrence: None)
  Receive Date: 20120815
  Receipt Date: 20120815
  Transmission Date: 20120928
  Serious: Yes (Hospitalization)
  Sender: FDA-Public Use
  Company Number: None

PATIENT
  Age: 90 Year
  Sex: Female
  Weight: 49.8957 kg

DRUGS (12)
  1. FUROSEMIDE [Suspect]
     Dosage: 20MG ONCE DAILY OTHER
     Route: 050
     Dates: start: 20120512, end: 20120618
  2. HEPARIN [Concomitant]
  3. INSULIN NPH/REGULAR [Concomitant]
  4. METOPROLOL TARTRATE [Concomitant]
  5. ACETAMINOPHEN [Concomitant]
  6. ZINC OXIDE [Concomitant]
  7. BACITRACIN [Concomitant]
  8. INSULIN ASPART [Concomitant]
  9. ENALAPRIL MALEATE [Concomitant]
  10. ESOMEPRAZOLE SODIUM [Concomitant]
  11. IPRATROPIUM BROMIDE AND ALBUTEROL SULFATE [Concomitant]
  12. MORPHINE [Concomitant]

REACTIONS (5)
  - OEDEMA [None]
  - SEPTIC SHOCK [None]
  - COMA [None]
  - HYPONATRAEMIA [None]
  - ACUTE PRERENAL FAILURE [None]
